FAERS Safety Report 8366336-7 (Version None)
Quarter: 2012Q2

REPORT INFORMATION
  Report Type: 
  Country: None (occurrence: None)
  Receive Date: 20120517
  Receipt Date: 20120508
  Transmission Date: 20120825
  Serious: No
  Sender: FDA-Public Use
  Company Number: CN-ASTRAZENECA-2012SE26071

PATIENT
  Age: 23 Year
  Sex: Female

DRUGS (4)
  1. SYMBICORT [Suspect]
     Dosage: 2 SPRAYS ONLY DAILY
     Route: 055
  2. TERBUTALINE [Suspect]
     Route: 048
  3. PULMICORT [Suspect]
     Indication: ASTHMA
     Dosage: 2 ML DILUTED 5 TIMES
     Route: 055
  4. ALBUTEROL [Concomitant]
     Dosage: IF NEEDED, 2 ML PHYSIOLOGICAL SALINE FOR DILUTION + 0.4 ML SALBUTAMOL

REACTIONS (1)
  - MATERNAL EXPOSURE DURING PREGNANCY [None]
